FAERS Safety Report 8532273-8 (Version None)
Quarter: 2012Q3

REPORT INFORMATION
  Report Type: 
  Country: None (occurrence: None)
  Receive Date: 20120724
  Receipt Date: 20120717
  Transmission Date: 20120928
  Serious: Yes (Hospitalization)
  Sender: FDA-Public Use
  Company Number: PHHO2012US007487

PATIENT
  Sex: Female
  Weight: 54 kg

DRUGS (24)
  1. IRINOTECAN HYDROCHLORIDE [Suspect]
     Indication: PANCREATIC CARCINOMA METASTATIC
     Dosage: 150 MG/M2, QW2
     Route: 042
     Dates: start: 20120424, end: 20120619
  2. CELEXA [Concomitant]
  3. MIRALAX [Concomitant]
  4. LDE 225 [Suspect]
     Dosage: 200 MG, QD
     Route: 048
     Dates: start: 20120628, end: 20120713
  5. CREON [Concomitant]
  6. FISH OIL [Concomitant]
  7. DILAUDID [Concomitant]
  8. COMPAZINE [Concomitant]
  9. OMEPRAZOLE [Concomitant]
  10. OXYCODONE HCL [Concomitant]
  11. LOMOTIL [Concomitant]
  12. LEUCOVORIN CALCIUM [Suspect]
     Indication: PANCREATIC CARCINOMA METASTATIC
     Dosage: 400 MG/M2, QW2
     Route: 042
     Dates: start: 20120424, end: 20120619
  13. ATIVAN [Concomitant]
  14. DECADRON [Concomitant]
  15. ZOFRAN [Concomitant]
  16. FLUOROURACIL [Suspect]
     Indication: PANCREATIC CARCINOMA METASTATIC
     Dosage: 1200 MG/M2 X 46 HOURS, QW2
     Route: 042
     Dates: start: 20120424, end: 20120619
  17. OXALIPLATIN [Suspect]
     Indication: PANCREATIC CARCINOMA METASTATIC
     Dosage: 65 MG/M2, QW2
     Route: 042
     Dates: start: 20120424, end: 20120619
  18. LDE 225 [Suspect]
     Dosage: 200 MG, QD
     Route: 048
     Dates: start: 20120605, end: 20120626
  19. EMEND [Concomitant]
  20. LDE 225 [Suspect]
     Indication: ADENOCARCINOMA PANCREAS
     Dosage: 200 MG, QD
     Route: 048
     Dates: start: 20120424, end: 20120512
  21. ESTROGENS [Concomitant]
  22. VITAMIN D [Concomitant]
  23. IMODIUM [Concomitant]
  24. REGLAN [Concomitant]

REACTIONS (5)
  - CHOLECYSTITIS ACUTE [None]
  - DIARRHOEA [None]
  - CHOLANGITIS [None]
  - NAUSEA [None]
  - PANCREATITIS [None]
